FAERS Safety Report 9300379 (Version 2)
Quarter: 2013Q2

REPORT INFORMATION
  Report Type: Spontaneous
  Country: IT (occurrence: IT)
  Receive Date: 20130521
  Receipt Date: 20130521
  Transmission Date: 20140414
  Serious: Yes (Hospitalization, Other)
  Sender: FDA-Public Use
  Company Number: IT-JNJFOC-20130510659

PATIENT
  Age: 45 Year
  Sex: Female

DRUGS (5)
  1. TRAMADOL HYDROCHLORIDE [Suspect]
     Indication: PRODUCT USED FOR UNKNOWN INDICATION
     Route: 048
     Dates: start: 20130408, end: 20130408
  2. NOZINAN [Suspect]
     Indication: PRODUCT USED FOR UNKNOWN INDICATION
     Dosage: 100 MG
     Route: 048
     Dates: start: 20130408, end: 20130408
  3. TRITTICO [Concomitant]
     Indication: PERSONALITY DISORDER
     Route: 048
  4. TAVOR [Concomitant]
     Indication: PERSONALITY DISORDER
     Route: 048
  5. RIVOTRIL [Concomitant]
     Indication: PERSONALITY DISORDER
     Route: 048

REACTIONS (5)
  - Substance abuse [Recovered/Resolved]
  - Intentional self-injury [Recovered/Resolved]
  - Convulsion [Recovered/Resolved]
  - Sopor [Recovered/Resolved]
  - Intentional overdose [Recovered/Resolved]
